FAERS Safety Report 16382189 (Version 1)
Quarter: 2019Q2

REPORT INFORMATION
  Report Type: Spontaneous
  Country: FR (occurrence: FR)
  Receive Date: 20190603
  Receipt Date: 20190603
  Transmission Date: 20190711
  Serious: Yes (Hospitalization)
  Sender: FDA-Public Use
  Company Number: FR-ACCORD-130869

PATIENT
  Age: 53 Year
  Sex: Male
  Weight: 70 kg

DRUGS (6)
  1. LORMETAZEPAM [Suspect]
     Active Substance: LORMETAZEPAM
     Route: 048
     Dates: start: 20190120, end: 20190120
  2. MIRTAZAPINE. [Suspect]
     Active Substance: MIRTAZAPINE
     Route: 048
     Dates: start: 20190120, end: 20190120
  3. QUETIAPINE. [Suspect]
     Active Substance: QUETIAPINE
     Dosage: ALSO RECEIVED 11.6 G ON 19-MAR-2019
     Route: 048
     Dates: start: 20190120, end: 20190120
  4. LOXAPINE. [Suspect]
     Active Substance: LOXAPINE
     Indication: PRODUCT USED FOR UNKNOWN INDICATION
     Route: 048
     Dates: start: 20190320
  5. VALIUM [Suspect]
     Active Substance: DIAZEPAM
     Dosage: 10 MG, SCORED TABLET
     Route: 048
     Dates: start: 20190319, end: 20190319
  6. ALIMEMAZINE/ALIMEMAZINE TARTRATE [Suspect]
     Active Substance: TRIMEPRAZINE
     Route: 048
     Dates: start: 20190120, end: 20190120

REACTIONS (5)
  - Coma [Recovered/Resolved]
  - Fall [Unknown]
  - Intentional overdose [Unknown]
  - Tachycardia [Recovered/Resolved]
  - Tachypnoea [Recovered/Resolved]

NARRATIVE: CASE EVENT DATE: 20190120
